FAERS Safety Report 12796781 (Version 1)
Quarter: 2016Q3

REPORT INFORMATION
  Report Type: Report from Study
  Country: US (occurrence: US)
  Receive Date: 20160929
  Receipt Date: 20160929
  Transmission Date: 20161109
  Serious: Yes (Other)
  Sender: FDA-Public Use
  Company Number: US-AMGEN-USASL2016130776

PATIENT
  Age: 80 Year
  Sex: Male

DRUGS (1)
  1. ENBREL [Suspect]
     Active Substance: ETANERCEPT
     Indication: PSORIATIC ARTHROPATHY
     Dosage: 25 MG, TWICE WEEKLY
     Route: 065
     Dates: start: 20110725

REACTIONS (4)
  - Staphylococcal infection [Unknown]
  - Drug dose omission [Unknown]
  - Arthralgia [Unknown]
  - Hip fracture [Unknown]

NARRATIVE: CASE EVENT DATE: 20140302
